FAERS Safety Report 9402014 (Version 3)
Quarter: 2013Q4

REPORT INFORMATION
  Report Type: Spontaneous
  Country: DE (occurrence: DE)
  Receive Date: 20130716
  Receipt Date: 20131118
  Transmission Date: 20140711
  Serious: Yes (Life-Threatening, Hospitalization, Disabling, Other)
  Sender: FDA-Public Use
  Company Number: PHHY2013DE074563

PATIENT
  Age: 54 Year
  Sex: Female

DRUGS (9)
  1. FEMARA [Suspect]
     Indication: BREAST CANCER
     Dosage: 2.5 MG, QD
     Route: 048
     Dates: start: 201302
  2. FOSAMAX [Concomitant]
     Indication: BREAST CANCER
     Dosage: UNK
     Dates: start: 201301
  3. FORADIL [Concomitant]
     Indication: BRONCHITIS
     Dosage: 12 UG, BID
     Dates: start: 2006
  4. SPIRIVA [Concomitant]
     Dosage: 1X2HUB, QD
  5. AMBROXOL [Concomitant]
     Dosage: UNK UKN, UNK
  6. FOSTER [Concomitant]
     Dosage: UNK UKN, UNK
  7. SALBUTAMOL [Concomitant]
     Dosage: UNK UKN, UNK
  8. PENICILLIN NOS [Concomitant]
     Dosage: UNK UKN, UNK
  9. ANTIBIOTICS [Concomitant]
     Dosage: UNK UKN, UNK

REACTIONS (3)
  - Haemoptysis [Not Recovered/Not Resolved]
  - Sleep disorder [Not Recovered/Not Resolved]
  - Hot flush [Not Recovered/Not Resolved]
